FAERS Safety Report 9641726 (Version 1)
Quarter: 2013Q4

REPORT INFORMATION
  Report Type: Spontaneous
  Country: US (occurrence: US)
  Receive Date: 20131023
  Receipt Date: 20131023
  Transmission Date: 20140711
  Serious: Yes (Hospitalization)
  Sender: FDA-Public Use
  Company Number: US-BAYER-2013-126861

PATIENT
  Age: 30 Year
  Sex: Female
  Weight: 69.84 kg

DRUGS (6)
  1. BEYAZ [Suspect]
  2. YAZ [Suspect]
  3. ARIXTRA [Concomitant]
  4. Z-PAK [Concomitant]
  5. PERCOCET [Concomitant]
  6. ALEVE LIQUID GELS [Concomitant]

REACTIONS (2)
  - Pulmonary embolism [None]
  - Pleuritic pain [None]
